FAERS Safety Report 13564448 (Version 1)
Quarter: 2017Q2

REPORT INFORMATION
  Report Type: Spontaneous
  Country: JP (occurrence: JP)
  Receive Date: 20170519
  Receipt Date: 20170519
  Transmission Date: 20170830
  Serious: Yes (Hospitalization, Other)
  Sender: FDA-Public Use
  Company Number: JP-009507513-1704JPN008645

PATIENT
  Age: 38 Year
  Sex: Male
  Weight: 55 kg

DRUGS (9)
  1. CANCIDAS [Suspect]
     Active Substance: CASPOFUNGIN ACETATE
     Indication: ANTIFUNGAL TREATMENT
     Dosage: 70 MG, ONCE
     Route: 042
     Dates: start: 20141215, end: 20141215
  2. CANCIDAS [Suspect]
     Active Substance: CASPOFUNGIN ACETATE
     Indication: FEBRILE NEUTROPENIA
  3. CYCLOSPORINE. [Concomitant]
     Active Substance: CYCLOSPORINE
     Indication: IMMUNOSUPPRESSANT DRUG THERAPY
     Dosage: ADMINISTERED TWICE DAILY EVERY 12 H
     Route: 048
  4. CANCIDAS [Suspect]
     Active Substance: CASPOFUNGIN ACETATE
     Indication: FEBRILE NEUTROPENIA
     Dosage: 50 MG, QD
     Route: 042
     Dates: start: 20141216, end: 20141218
  5. CYCLOSPORINE. [Concomitant]
     Active Substance: CYCLOSPORINE
     Indication: IMMUNOSUPPRESSANT DRUG THERAPY
     Dosage: ADMINISTERED TWICE DAILY EVERY 12 H OVER 3 H
     Route: 042
  6. TACROLIMUS. [Concomitant]
     Active Substance: TACROLIMUS
     Indication: IMMUNOSUPPRESSANT DRUG THERAPY
     Dosage: CONTINUOUSLY INFUSED
     Route: 042
  7. TARGOCID [Suspect]
     Active Substance: TEICOPLANIN
     Indication: FEBRILE NEUTROPENIA
     Dosage: 600 MG, BID
     Route: 042
     Dates: start: 20141211, end: 20141219
  8. TACROLIMUS. [Concomitant]
     Active Substance: TACROLIMUS
     Indication: IMMUNOSUPPRESSANT DRUG THERAPY
     Dosage: ADMINISTERED TWICE DAILY EVERY 12 H
     Route: 048
  9. CYCLOSPORINE. [Concomitant]
     Active Substance: CYCLOSPORINE
     Dosage: ADMINISTERED ONCE DAILY OVER 10 H
     Route: 042

REACTIONS (2)
  - Venoocclusive liver disease [Recovering/Resolving]
  - Hepatotoxicity [Recovering/Resolving]

NARRATIVE: CASE EVENT DATE: 20141219
